FAERS Safety Report 6895000-6 (Version None)
Quarter: 2010Q3

REPORT INFORMATION
  Report Type: 
  Country: None (occurrence: None)
  Receive Date: 20100730
  Receipt Date: 20100730
  Transmission Date: 20110219
  Serious: Yes (Hospitalization, Disabling, Other)
  Sender: FDA-Public Use
  Company Number: None

PATIENT
  Age: 80 Year
  Sex: Female
  Weight: 66.2252 kg

DRUGS (2)
  1. FOSAMAX [Suspect]
     Indication: BONE DISORDER
     Dosage: 70 MG. 1 X WK. ORAL LAST DOSE 4-23-10
     Route: 048
     Dates: start: 20020101, end: 20100101
  2. FOSAMAX [Suspect]
     Indication: PROPHYLAXIS
     Dosage: 70 MG. 1 X WK. ORAL LAST DOSE 4-23-10
     Route: 048
     Dates: start: 20020101, end: 20100101

REACTIONS (3)
  - HIATUS HERNIA [None]
  - OESOPHAGEAL SPASM [None]
  - OESOPHAGEAL STENOSIS [None]
